FAERS Safety Report 4434936-2 (Version None)
Quarter: 2004Q3

REPORT INFORMATION
  Report Type: 
  Country: None (occurrence: None)
  Receive Date: 20040726
  Receipt Date: 20040517
  Transmission Date: 20050211
  Serious: No
  Sender: FDA-Public Use
  Company Number: USA040567180

PATIENT
  Age: 76 Year
  Sex: Female
  Weight: 75 kg

DRUGS (6)
  1. FORTEO [Suspect]
     Indication: OSTEOPOROSIS
     Dosage: 20 UG
     Dates: start: 20040423
  2. PREVACID [Concomitant]
  3. PRAVACHOL [Concomitant]
  4. NORVASC [Concomitant]
  5. MULTIVITAMIN [Concomitant]
  6. OSCAL 500-D [Concomitant]

REACTIONS (1)
  - INJECTION SITE HAEMORRHAGE [None]
